FAERS Safety Report 5974790-0 (Version None)
Quarter: 2008Q4

REPORT INFORMATION
  Report Type: 
  Country: None (occurrence: None)
  Receive Date: 20081201
  Receipt Date: 20080207
  Transmission Date: 20090506
  Serious: No
  Sender: FDA-Public Use
  Company Number: US-AMGEN-KDL264428

PATIENT
  Sex: Male

DRUGS (4)
  1. ENBREL [Suspect]
     Indication: RHEUMATOID ARTHRITIS
     Route: 058
     Dates: start: 20080118
  2. PLAQUENIL [Concomitant]
     Dates: start: 20060101
  3. SULFASALAZINE [Concomitant]
     Dates: start: 20070201
  4. METHOTREXATE [Concomitant]
     Route: 048
     Dates: start: 20070201

REACTIONS (2)
  - COUGH [None]
  - POSTNASAL DRIP [None]
